FAERS Safety Report 16145600 (Version 4)
Quarter: 2019Q2

REPORT INFORMATION
  Report Type: Report from Study
  Country: JP (occurrence: JP)
  Receive Date: 20190402
  Receipt Date: 20190618
  Transmission Date: 20190711
  Serious: Yes (Hospitalization)
  Sender: FDA-Public Use
  Company Number: JP-ROCHE-2291505

PATIENT
  Age: 42 Year
  Sex: Male
  Weight: 56 kg

DRUGS (42)
  1. MYCOPHENOLATE MOFETIL. [Suspect]
     Active Substance: MYCOPHENOLATE MOFETIL
     Indication: PROPHYLAXIS AGAINST TRANSPLANT REJECTION
     Dosage: DOSE INTERVAL UNCERTAINTY
     Route: 048
     Dates: start: 20161019
  2. GRACEPTOR [Suspect]
     Active Substance: TACROLIMUS
     Indication: PROPHYLAXIS AGAINST TRANSPLANT REJECTION
     Dosage: DOSAGE IS UNCERTAIN.
     Route: 048
     Dates: start: 20161020
  3. SIMULECT [Suspect]
     Active Substance: BASILIXIMAB
     Route: 042
     Dates: start: 20161116, end: 20161116
  4. SOLU-MEDROL [Concomitant]
     Active Substance: METHYLPREDNISOLONE SODIUM SUCCINATE
     Route: 042
     Dates: start: 20161101, end: 20161101
  5. SOLU-MEDROL [Concomitant]
     Active Substance: METHYLPREDNISOLONE SODIUM SUCCINATE
     Route: 042
     Dates: start: 20161115, end: 20161120
  6. CLAFORAN [Concomitant]
     Active Substance: CEFOTAXIME SODIUM
     Indication: INFECTION PROPHYLAXIS
     Dosage: DOSE INTERVAL UNCERTAINTY
     Route: 042
     Dates: start: 20161026, end: 20161030
  7. MYCOPHENOLATE MOFETIL. [Suspect]
     Active Substance: MYCOPHENOLATE MOFETIL
     Dosage: DOSE INTERVAL UNCERTAINTY
     Route: 048
  8. MEDROL [Suspect]
     Active Substance: METHYLPREDNISOLONE
     Dosage: DOSE INTERVAL UNCERTAINTY
     Route: 048
     Dates: start: 20161203, end: 20161212
  9. SOLU-MEDROL [Concomitant]
     Active Substance: METHYLPREDNISOLONE SODIUM SUCCINATE
     Route: 042
     Dates: start: 20161028, end: 20161028
  10. SOLU-MEDROL [Concomitant]
     Active Substance: METHYLPREDNISOLONE SODIUM SUCCINATE
     Route: 042
     Dates: start: 20161029, end: 20161029
  11. SOLU-MEDROL [Concomitant]
     Active Substance: METHYLPREDNISOLONE SODIUM SUCCINATE
     Route: 042
     Dates: start: 20161110, end: 20161114
  12. SOLU-MEDROL [Concomitant]
     Active Substance: METHYLPREDNISOLONE SODIUM SUCCINATE
     Route: 042
     Dates: start: 20161215, end: 20161215
  13. MYCOPHENOLATE MOFETIL. [Suspect]
     Active Substance: MYCOPHENOLATE MOFETIL
     Dosage: DOSE INTERVAL UNCERTAINTY
     Route: 048
  14. MYCOPHENOLATE MOFETIL. [Suspect]
     Active Substance: MYCOPHENOLATE MOFETIL
     Dosage: DOSE INTERVAL UNCERTAINTY
     Route: 048
  15. SOLU-MEDROL [Concomitant]
     Active Substance: METHYLPREDNISOLONE SODIUM SUCCINATE
     Route: 042
     Dates: start: 20161030, end: 20161030
  16. SOLU-MEDROL [Concomitant]
     Active Substance: METHYLPREDNISOLONE SODIUM SUCCINATE
     Route: 042
     Dates: start: 20161107, end: 20161107
  17. SOLU-MEDROL [Concomitant]
     Active Substance: METHYLPREDNISOLONE SODIUM SUCCINATE
     Route: 042
     Dates: start: 20161214, end: 20161214
  18. SOLU-MEDROL [Concomitant]
     Active Substance: METHYLPREDNISOLONE SODIUM SUCCINATE
     Route: 042
     Dates: start: 20161216, end: 20161216
  19. MYCOPHENOLATE MOFETIL. [Suspect]
     Active Substance: MYCOPHENOLATE MOFETIL
     Dosage: DOSE INTERVAL UNCERTAINTY
     Route: 048
  20. SOLU-MEDROL [Concomitant]
     Active Substance: METHYLPREDNISOLONE SODIUM SUCCINATE
     Route: 042
     Dates: start: 20161031, end: 20161031
  21. SOLU-MEDROL [Concomitant]
     Active Substance: METHYLPREDNISOLONE SODIUM SUCCINATE
     Route: 042
     Dates: start: 20161109, end: 20161109
  22. SOLU-MEDROL [Concomitant]
     Active Substance: METHYLPREDNISOLONE SODIUM SUCCINATE
     Route: 042
     Dates: start: 20161121, end: 20161124
  23. ACETAMINOPHEN. [Concomitant]
     Active Substance: ACETAMINOPHEN
     Indication: PREMEDICATION
     Route: 048
  24. RITUXIMAB. [Suspect]
     Active Substance: RITUXIMAB
     Indication: PROPHYLAXIS AGAINST TRANSPLANT REJECTION
     Route: 041
     Dates: start: 20161012, end: 20161012
  25. SOLU-MEDROL [Concomitant]
     Active Substance: METHYLPREDNISOLONE SODIUM SUCCINATE
     Route: 042
     Dates: start: 20161027, end: 20161027
  26. SOLU-MEDROL [Concomitant]
     Active Substance: METHYLPREDNISOLONE SODIUM SUCCINATE
     Route: 042
     Dates: start: 20161104, end: 20161104
  27. SOLU-MEDROL [Concomitant]
     Active Substance: METHYLPREDNISOLONE SODIUM SUCCINATE
     Route: 042
     Dates: start: 20161106, end: 20161106
  28. SOLU-MEDROL [Concomitant]
     Active Substance: METHYLPREDNISOLONE SODIUM SUCCINATE
     Route: 042
     Dates: start: 20161108, end: 20161108
  29. UNASYN S [Concomitant]
     Active Substance: AMPICILLIN SODIUM\SULBACTAM SODIUM
     Indication: INFECTION PROPHYLAXIS
     Dosage: DOSE INTERVAL UNCERTAINTY
     Route: 042
     Dates: start: 20161026, end: 20161031
  30. MYCOPHENOLATE MOFETIL. [Suspect]
     Active Substance: MYCOPHENOLATE MOFETIL
     Dosage: DOSE INTERVAL UNCERTAINTY
     Route: 048
  31. MYCOPHENOLATE MOFETIL. [Suspect]
     Active Substance: MYCOPHENOLATE MOFETIL
     Dosage: DOSE INTERVAL UNCERTAINTY
     Route: 048
  32. SOLU-MEDROL [Concomitant]
     Active Substance: METHYLPREDNISOLONE SODIUM SUCCINATE
     Route: 042
     Dates: start: 20161102, end: 20161102
  33. SOLU-MEDROL [Concomitant]
     Active Substance: METHYLPREDNISOLONE SODIUM SUCCINATE
     Route: 042
     Dates: start: 20161103, end: 20161103
  34. VENOGLOBULIN [Concomitant]
     Active Substance: HUMAN IMMUNOGLOBULIN G
     Indication: INFECTION PROPHYLAXIS
     Dosage: DOSE INTERVAL UNCERTAINTY
     Route: 042
     Dates: start: 20161027, end: 20161029
  35. ZOSYN [Concomitant]
     Active Substance: PIPERACILLIN SODIUM\TAZOBACTAM SODIUM
     Dosage: DOSE INTERVAL UNCERTAINTY
     Route: 042
     Dates: start: 20161108, end: 20161120
  36. MYCOPHENOLATE MOFETIL. [Suspect]
     Active Substance: MYCOPHENOLATE MOFETIL
     Dosage: DOSE INTERVAL UNCERTAINTY
     Route: 048
  37. SOLU-MEDROL [Concomitant]
     Active Substance: METHYLPREDNISOLONE SODIUM SUCCINATE
     Route: 042
     Dates: start: 20161213, end: 20161213
  38. MEDROL [Suspect]
     Active Substance: METHYLPREDNISOLONE
     Indication: PRODUCT USED FOR UNKNOWN INDICATION
     Dosage: DOSE INTERVAL UNCERTAINTY
     Route: 048
     Dates: start: 20161125, end: 20161202
  39. SIMULECT [Suspect]
     Active Substance: BASILIXIMAB
     Indication: PROPHYLAXIS AGAINST TRANSPLANT REJECTION
     Route: 042
     Dates: start: 20161112, end: 20161112
  40. SOLU-MEDROL [Concomitant]
     Active Substance: METHYLPREDNISOLONE SODIUM SUCCINATE
     Indication: BACTERAEMIA
     Route: 042
     Dates: start: 20161026, end: 20161026
  41. SOLU-MEDROL [Concomitant]
     Active Substance: METHYLPREDNISOLONE SODIUM SUCCINATE
     Route: 042
     Dates: start: 20161105, end: 20161105
  42. FUNGUARD [Concomitant]
     Active Substance: MICAFUNGIN SODIUM
     Indication: INFECTION PROPHYLAXIS
     Dosage: DOSE INTERVAL UNCERTAINTY
     Route: 042
     Dates: start: 20161026, end: 20161109

REACTIONS (4)
  - Liver abscess [Recovering/Resolving]
  - Bacteraemia [Recovering/Resolving]
  - Cholangitis infective [Recovering/Resolving]
  - Cytomegalovirus infection [Recovering/Resolving]

NARRATIVE: CASE EVENT DATE: 20161119
